FAERS Safety Report 23847150 (Version 1)
Quarter: 2024Q2

REPORT INFORMATION
  Report Type: Spontaneous
  Country: US (occurrence: US)
  Receive Date: 20240513
  Receipt Date: 20240513
  Transmission Date: 20240716
  Serious: No
  Sender: FDA-Public Use
  Company Number: US-002147023-NVSC2024US099905

PATIENT
  Sex: Male

DRUGS (2)
  1. INCLISIRAN [Suspect]
     Active Substance: INCLISIRAN
     Indication: Low density lipoprotein increased
     Dosage: UNK
     Route: 065
  2. INCLISIRAN [Suspect]
     Active Substance: INCLISIRAN
     Dosage: 284 MG, OTHER (1, 3, AND THEN A 6 MONTHS)
     Route: 058

REACTIONS (1)
  - Drug ineffective [Unknown]
